FAERS Safety Report 4299222-2 (Version None)
Quarter: 2004Q1

REPORT INFORMATION
  Report Type: 
  Country: None (occurrence: None)
  Receive Date: 20040217
  Receipt Date: 20040203
  Transmission Date: 20041129
  Serious: Yes (Other)
  Sender: FDA-Public Use
  Company Number: GB-JNJFOC-20040200719

PATIENT
  Age: 58 Year
  Sex: Female

DRUGS (8)
  1. REMICADE [Suspect]
     Indication: RHEUMATOID ARTHRITIS
     Dosage: 200 MG INTRAVENOUS
     Route: 042
     Dates: start: 20020918
  2. PREDNISOLONE [Concomitant]
  3. FLUOXETINE [Concomitant]
  4. LANSOPRAZOLE [Concomitant]
  5. KETOCID (KETOPROFEN) [Concomitant]
  6. PREMPAK-C (PREMPAK /OLD FORM/) [Concomitant]
  7. ZIMOVANE (ZOPLICLONE) [Concomitant]
  8. CO-DYDRAMOL (PARAMOL-118) [Concomitant]

REACTIONS (1)
  - ULNA FRACTURE [None]
